FAERS Safety Report 6743215-X (Version None)
Quarter: 2010Q2

REPORT INFORMATION
  Report Type: 
  Country: None (occurrence: None)
  Receive Date: 20100527
  Receipt Date: 20100520
  Transmission Date: 20101027
  Serious: Yes (Death)
  Sender: FDA-Public Use
  Company Number: JP-BAYER-201012461BYL

PATIENT
  Age: 73 Year
  Sex: Male
  Weight: 49 kg

DRUGS (6)
  1. NEXAVAR [Suspect]
     Indication: HEPATIC NEOPLASM MALIGNANT
     Dosage: TOTAL DAILY DOSE: 800 MG  UNIT DOSE: 200 MG
     Route: 048
     Dates: start: 20090713, end: 20091023
  2. PARIET [Concomitant]
     Dosage: SINCE BEFORE ADMINISTRATION
     Route: 048
  3. URSO 250 [Concomitant]
     Dosage: SINCE BEFORE ADMINISTRATION
     Route: 048
  4. LENDORMIN [Concomitant]
     Indication: INSOMNIA
     Dosage: SINCE BEFORE ADMINISTRATION
     Route: 048
  5. GLAKAY [Concomitant]
     Dosage: SINCE BEFORE ADMINISTRATION
     Route: 048
  6. JUZENTAIHOTO [Concomitant]
     Dosage: SINCE BEFORE ADMINISTRATION
     Route: 048

REACTIONS (6)
  - ASCITES [None]
  - COMPLETED SUICIDE [None]
  - DIARRHOEA [None]
  - DYSGEUSIA [None]
  - JAUNDICE [None]
  - PALMAR-PLANTAR ERYTHRODYSAESTHESIA SYNDROME [None]
